FAERS Safety Report 5908469-8 (Version None)
Quarter: 2008Q4

REPORT INFORMATION
  Report Type: 
  Country: None (occurrence: None)
  Receive Date: 20081006
  Receipt Date: 20080924
  Transmission Date: 20090506
  Serious: Yes (Hospitalization)
  Sender: FDA-Public Use
  Company Number: US-AMGEN-US309744

PATIENT
  Sex: Female
  Weight: 53.6 kg

DRUGS (6)
  1. NEUPOGEN [Suspect]
     Indication: CHEMOTHERAPY
     Route: 065
     Dates: start: 20080514
  2. ARANESP [Suspect]
     Indication: ANAEMIA OF MALIGNANT DISEASE
     Route: 065
     Dates: start: 20080514
  3. FLUOROURACIL [Suspect]
     Route: 065
     Dates: start: 20080521, end: 20080523
  4. LEUCOVORIN CALCIUM [Suspect]
     Route: 065
     Dates: start: 20080521, end: 20080523
  5. AVASTIN [Suspect]
     Route: 065
  6. OXALIPLATIN [Suspect]
     Route: 065
     Dates: start: 20080521, end: 20080523

REACTIONS (1)
  - CONVULSION [None]
